FAERS Safety Report 13653448 (Version 1)
Quarter: 2017Q2

REPORT INFORMATION
  Report Type: Spontaneous
  Country: US (occurrence: US)
  Receive Date: 20170614
  Receipt Date: 20170614
  Transmission Date: 20170830
  Serious: No
  Sender: FDA-Public Use
  Company Number: US-ROCHE-1298802

PATIENT
  Age: 70 Year
  Sex: Female

DRUGS (8)
  1. LEVOTHYROXINE. [Concomitant]
     Active Substance: LEVOTHYROXINE
  2. VITAMIN B3 [Concomitant]
     Active Substance: NIACIN
  3. XELODA [Suspect]
     Active Substance: CAPECITABINE
     Route: 048
     Dates: start: 20140603
  4. PRAVASTATIN. [Concomitant]
     Active Substance: PRAVASTATIN
  5. LORATADINE. [Concomitant]
     Active Substance: LORATADINE
  6. ALENDRONATE [Concomitant]
     Active Substance: ALENDRONATE SODIUM
  7. XELODA [Suspect]
     Active Substance: CAPECITABINE
     Indication: COLON CANCER
     Route: 048
     Dates: start: 20130928, end: 20140602
  8. OMEGA 3 [Concomitant]
     Active Substance: OMEGA-3 FATTY ACIDS

REACTIONS (7)
  - Nausea [Unknown]
  - Palmar-plantar erythrodysaesthesia syndrome [Not Recovered/Not Resolved]
  - Dysgeusia [Unknown]
  - Skin discolouration [Unknown]
  - Diarrhoea [Unknown]
  - Peripheral swelling [Unknown]
  - Weight decreased [Unknown]

NARRATIVE: CASE EVENT DATE: 20140712
